FAERS Safety Report 25425474 (Version 1)
Quarter: 2025Q2

REPORT INFORMATION
  Report Type: Spontaneous
  Country: US (occurrence: US)
  Receive Date: 20250611
  Receipt Date: 20250611
  Transmission Date: 20250716
  Serious: Yes (Other)
  Sender: ALEXION PHARMACEUTICALS
  Company Number: US-AstraZeneca-CH-00887329A

PATIENT

DRUGS (1)
  1. FASENRA [Suspect]
     Active Substance: BENRALIZUMAB
     Indication: Asthma
     Dosage: 30 MILLIGRAM PER MILLILITRE, Q4W
     Route: 065

REACTIONS (9)
  - Product prescribing issue [Unknown]
  - Pulmonary function test decreased [Unknown]
  - Product dose omission issue [Unknown]
  - Urticaria [Unknown]
  - Dyspnoea [Unknown]
  - Sneezing [Unknown]
  - Wheezing [Unknown]
  - Pneumonia [Unknown]
  - Nasopharyngitis [Unknown]
